FAERS Safety Report 10052611 (Version 2)
Quarter: 2014Q2

REPORT INFORMATION
  Report Type: Spontaneous
  Country: US (occurrence: US)
  Receive Date: 20140402
  Receipt Date: 20140402
  Transmission Date: 20141212
  Serious: Yes (Hospitalization, Other)
  Sender: FDA-Public Use
  Company Number: US-MYLANLABS-2014S1007191

PATIENT
  Sex: Female
  Weight: 59.88 kg

DRUGS (2)
  1. RANITIDINE TABLETS [Suspect]
     Indication: CROHN^S DISEASE
     Route: 048
  2. RANITIDINE TABLETS [Suspect]
     Indication: GASTROOESOPHAGEAL REFLUX DISEASE
     Route: 048

REACTIONS (5)
  - Intestinal obstruction [Recovered/Resolved]
  - Gastrointestinal haemorrhage [Recovered/Resolved]
  - Haemoptysis [Recovered/Resolved]
  - Haematuria [Recovered/Resolved]
  - Reaction to drug excipients [Recovered/Resolved]
